FAERS Safety Report 10765024 (Version 1)
Quarter: 2015Q1

REPORT INFORMATION
  Report Type: Spontaneous
  Country: US (occurrence: None)
  Receive Date: 20150204
  Receipt Date: 20150204
  Transmission Date: 20150721
  Serious: Yes (Hospitalization)
  Sender: FDA-Public Use
  Company Number: None

PATIENT
  Age: 58 Year
  Sex: Female
  Weight: 82.4 kg

DRUGS (3)
  1. BEVACIZUMAB (RHUMAB VEGF) [Suspect]
     Active Substance: BEVACIZUMAB
     Dates: start: 20150127
  2. ALIMTA [Suspect]
     Active Substance: PEMETREXED DISODIUM
     Indication: NAUSEA
     Dates: start: 20150127
  3. ALIMTA [Suspect]
     Active Substance: PEMETREXED DISODIUM
     Indication: VOMITING
     Dates: start: 20150127

REACTIONS (2)
  - Nausea [None]
  - Vomiting [None]

NARRATIVE: CASE EVENT DATE: 20150128
